FAERS Safety Report 6173330-3 (Version None)
Quarter: 2009Q2

REPORT INFORMATION
  Report Type: 
  Country: None (occurrence: None)
  Receive Date: 20090430
  Receipt Date: 20090424
  Transmission Date: 20091009
  Serious: Yes (Life-Threatening, Hospitalization)
  Sender: FDA-Public Use
  Company Number: FR-WYE-G03562309

PATIENT
  Age: 11 Year
  Sex: Female

DRUGS (2)
  1. TAZOCILLINE [Suspect]
     Dosage: UNKNOWN
     Route: 042
     Dates: start: 20090101, end: 20090101
  2. VANCOMYCIN HCL [Concomitant]
     Dosage: UNKNOWN
     Dates: start: 20090101

REACTIONS (5)
  - ABDOMINAL PAIN [None]
  - ANAPHYLACTIC SHOCK [None]
  - CONDITION AGGRAVATED [None]
  - PYREXIA [None]
  - VOMITING PROJECTILE [None]
